FAERS Safety Report 5281161-1 (Version None)
Quarter: 2007Q1

REPORT INFORMATION
  Report Type: 
  Country: None (occurrence: None)
  Receive Date: 20070329
  Receipt Date: 20070319
  Transmission Date: 20070707
  Serious: Yes (Death, Life-Threatening, Hospitalization, Disabling)
  Sender: FDA-Public Use
  Company Number: US-MERCK-0703USA03696

PATIENT
  Age: 51 Year
  Sex: Male

DRUGS (3)
  1. ETOPOSIDE [Suspect]
     Indication: SMALL CELL LUNG CANCER STAGE UNSPECIFIED
     Route: 042
     Dates: start: 20070202, end: 20070204
  2. CISPLATIN [Suspect]
     Indication: SMALL CELL LUNG CANCER STAGE UNSPECIFIED
     Route: 042
     Dates: start: 20070202, end: 20070202
  3. EMEND [Suspect]
     Indication: NAUSEA
     Route: 065

REACTIONS (4)
  - CHEST PAIN [None]
  - NEUTROPENIA [None]
  - SEPSIS [None]
  - SMALL CELL LUNG CANCER STAGE UNSPECIFIED [None]
